FAERS Safety Report 8914082 (Version 1)
Quarter: 2012Q4

REPORT INFORMATION
  Report Type: Report from Study
  Country: DK (occurrence: DE)
  Receive Date: 20121119
  Receipt Date: 20121119
  Transmission Date: 20130627
  Serious: Yes (Hospitalization, Other)
  Sender: FDA-Public Use
  Company Number: DE-FRI-1000040379

PATIENT
  Age: 51 Year
  Sex: Male

DRUGS (3)
  1. CITALOPRAM [Suspect]
     Dosage: 10 mg
     Route: 048
     Dates: start: 20120125, end: 20120202
  2. CITALOPRAM [Suspect]
     Dosage: 10 mg
     Route: 048
     Dates: start: 200902, end: 200911
  3. LISINOPRIL [Concomitant]
     Dosage: 20 mg
     Route: 048

REACTIONS (4)
  - Suicide attempt [Recovered/Resolved]
  - Restlessness [Recovered/Resolved]
  - Insomnia [Recovered/Resolved]
  - Obsessive rumination [Recovered/Resolved]
